FAERS Safety Report 5144922-5 (Version None)
Quarter: 2006Q4

REPORT INFORMATION
  Report Type: 
  Country: None (occurrence: None)
  Receive Date: 20061107
  Receipt Date: 20061027
  Transmission Date: 20070319
  Serious: Yes (Disabling)
  Sender: FDA-Public Use
  Company Number: PHBS2006NL16704

PATIENT
  Sex: Female

DRUGS (1)
  1. DICLOFENAC [Suspect]
     Route: 030

REACTIONS (1)
  - PERONEAL NERVE PALSY [None]
